FAERS Safety Report 7477624-0 (Version None)
Quarter: 2011Q2

REPORT INFORMATION
  Report Type: 
  Country: None (occurrence: None)
  Receive Date: 20110513
  Receipt Date: 20101001
  Transmission Date: 20111010
  Serious: Yes (Hospitalization)
  Sender: FDA-Public Use
  Company Number: US-BAYER-201034826NA

PATIENT
  Sex: Female
  Weight: 108 kg

DRUGS (19)
  1. CIPROFLOXACIN [Concomitant]
  2. NALBUPHINE HYDROCHLORIDE [Concomitant]
     Dosage: UNK
     Dates: start: 20100215
  3. YASMIN [Suspect]
  4. NASONEX [Concomitant]
  5. HYDROCODONE BITARTRATE AND ACETAMINOPHEN [Concomitant]
  6. ZOCOR [Concomitant]
  7. SEROQUEL [Concomitant]
  8. DEXAMETHASONE SODIUM PHOSPHATE [Concomitant]
     Dosage: UNK
     Dates: start: 20100324
  9. DROSPIRENONE AND ETHINYL ESTRADIOL [Suspect]
  10. YAZ [Suspect]
     Dosage: UNK
     Dates: start: 20080201, end: 20080401
  11. LISINOPRIL [Concomitant]
  12. KETOROLAC TROMETHAMINE [Concomitant]
  13. ALLERGY MEDICATION [Concomitant]
  14. PROMETHAZINE [Concomitant]
  15. SULFAMETHOXAZOLE AND TRIMETHOPRIM DOUBLE STRENGTH [Concomitant]
  16. METOPROLOL SUCCINATE [Concomitant]
  17. ROCEPHIN [Concomitant]
     Dosage: UNK
     Dates: start: 20090930
  18. PROMETHAZINE HYDROCHLORIDE [Concomitant]
  19. PAROXETINE HCL [Concomitant]

REACTIONS (4)
  - INJURY [None]
  - ACUTE MYOCARDIAL INFARCTION [None]
  - CORONARY ARTERY DISEASE [None]
  - MYOCARDIAL INFARCTION [None]
